FAERS Safety Report 19265120 (Version 5)
Quarter: 2022Q3

REPORT INFORMATION
  Report Type: Spontaneous
  Country: GR (occurrence: GR)
  Receive Date: 20210517
  Receipt Date: 20220826
  Transmission Date: 20221027
  Serious: Yes (Hospitalization)
  Sender: FDA-Public Use
  Company Number: GR-NOVARTISPH-NVSC2021GR100296

PATIENT
  Age: 71 Year
  Sex: Female
  Weight: 98 kg

DRUGS (29)
  1. LAPATINIB [Suspect]
     Active Substance: LAPATINIB
     Indication: HER2 positive breast cancer
     Dosage: 1250 MG, QD
     Route: 042
     Dates: start: 20180611
  2. LAPATINIB [Suspect]
     Active Substance: LAPATINIB
     Dosage: 1250 MG, QD (MOST RECENT DOSE PRIOR TO THE EVENT: 14/NOV/2018)
     Route: 048
     Dates: start: 20180618, end: 20180709
  3. LAPATINIB [Suspect]
     Active Substance: LAPATINIB
     Dosage: 1000 MG, QD (SOLUTION FOR INFUSION)
     Route: 042
     Dates: start: 20180723, end: 20181113
  4. CAPECITABINE [Suspect]
     Active Substance: CAPECITABINE
     Indication: HER2 positive breast cancer
     Dosage: 2000 MG, BID (MOST RECENT DOSE PRIOR TO THE EVENT ON 22/OCT/201)
     Route: 048
     Dates: start: 20180618, end: 20180709
  5. GEMCITABINE [Suspect]
     Active Substance: GEMCITABINE
     Indication: HER2 positive breast cancer
     Dosage: 2000 MG (MOST RECENT DOSE PRIOR TO THE EVENT: 10/MAY/2019)
     Route: 042
     Dates: start: 20190510, end: 20190703
  6. GEMCITABINE [Suspect]
     Active Substance: GEMCITABINE
     Dosage: 1500 MG
     Route: 042
     Dates: start: 20190724, end: 20190821
  7. ADO-TRASTUZUMAB EMTANSINE [Suspect]
     Active Substance: ADO-TRASTUZUMAB EMTANSINE
     Indication: HER2 positive breast cancer
     Dosage: 270 MG, Q3W
     Route: 042
     Dates: start: 20170726, end: 20180504
  8. PERTUZUMAB [Suspect]
     Active Substance: PERTUZUMAB
     Indication: HER2 positive breast cancer
     Dosage: 840 MG/KG, Q3W
     Route: 048
     Dates: start: 20161018
  9. PERTUZUMAB [Suspect]
     Active Substance: PERTUZUMAB
     Dosage: 840 MG/KG, Q3W (MOST RECENT DOSE PRIOR TO THE EVENT: 12/DEC/2016)
     Route: 048
     Dates: start: 20161117, end: 20161117
  10. TRASTUZUMAB [Suspect]
     Active Substance: TRASTUZUMAB
     Indication: HER2 positive breast cancer
     Dosage: 8 MG/KG, Q3W
     Route: 042
     Dates: start: 20161018
  11. TRASTUZUMAB [Suspect]
     Active Substance: TRASTUZUMAB
     Dosage: 780 MG, Q3W (TABLET) (MOST RECENT DOSE PRIOR TO THE EVENT: 10/MAY/2019)
     Route: 048
     Dates: start: 20161025, end: 20161025
  12. DOCETAXEL [Suspect]
     Active Substance: DOCETAXEL
     Indication: HER2 positive breast cancer
     Dosage: 75 MG/KG, Q3W
     Route: 042
     Dates: start: 20161018
  13. DOCETAXEL [Suspect]
     Active Substance: DOCETAXEL
     Dosage: 160 MG, Q3W (MOST RECENT DOSE PRIOR TO THE EVENT: 17/NOV/2016)
     Route: 042
     Dates: start: 20161025, end: 20161025
  14. GRANULOKINE [Concomitant]
     Active Substance: FILGRASTIM
     Indication: Febrile neutropenia
     Dosage: UNK
     Route: 065
     Dates: start: 20161102, end: 20161104
  15. LOSEC [Concomitant]
     Active Substance: OMEPRAZOLE
     Indication: Product used for unknown indication
     Dosage: UNK
     Route: 065
     Dates: start: 20190703, end: 20190709
  16. ACETAMINOPHEN\CODEINE PHOSPHATE [Concomitant]
     Active Substance: ACETAMINOPHEN\CODEINE PHOSPHATE
     Indication: Product used for unknown indication
     Dosage: UNK
     Route: 065
  17. LEVOTHYROXINE [Concomitant]
     Active Substance: LEVOTHYROXINE
     Indication: Product used for unknown indication
     Dosage: ONGOING = CHECKED
     Route: 065
     Dates: start: 20090615
  18. ZOMETA [Concomitant]
     Active Substance: ZOLEDRONIC ACID
     Indication: Product used for unknown indication
     Dosage: UNK
     Route: 065
     Dates: start: 20161018, end: 20190605
  19. LAMISIL [Concomitant]
     Active Substance: TERBINAFINE HYDROCHLORIDE
     Indication: Onychomycosis
     Dosage: UNK
     Route: 065
     Dates: start: 20170404, end: 20170517
  20. CALCIUM CARBONATE\CHOLECALCIFEROL [Concomitant]
     Active Substance: CALCIUM CARBONATE\CHOLECALCIFEROL
     Indication: Product used for unknown indication
     Dosage: UNK
     Route: 065
     Dates: start: 20171218, end: 20190605
  21. CIPROFLOXACIN [Concomitant]
     Active Substance: CIPROFLOXACIN
     Indication: Pyrexia
     Dosage: UNK
     Route: 065
     Dates: start: 20190503, end: 20190510
  22. CIPROFLOXACIN [Concomitant]
     Active Substance: CIPROFLOXACIN
     Dosage: UNK
     Route: 065
     Dates: start: 20190705, end: 20190709
  23. VANCOMYCIN HYDROCHLORIDE [Concomitant]
     Active Substance: VANCOMYCIN HYDROCHLORIDE
     Indication: Product used for unknown indication
     Dosage: UNK
     Route: 065
     Dates: start: 20190706, end: 20190709
  24. PRIMPERAN [Concomitant]
     Active Substance: METOCLOPRAMIDE HYDROCHLORIDE
     Indication: Abdominal pain
     Dosage: UNK
     Route: 065
     Dates: start: 20161102, end: 20161104
  25. PRIMPERAN [Concomitant]
     Active Substance: METOCLOPRAMIDE HYDROCHLORIDE
     Dosage: UNK
     Route: 065
     Dates: start: 20161106, end: 20161110
  26. STABILANOL [Concomitant]
     Indication: Onychomycosis
     Dosage: UNK
     Route: 065
     Dates: start: 20171218, end: 20180106
  27. STABILANOL [Concomitant]
     Dosage: UNK
     Route: 065
     Dates: start: 20180205, end: 20180224
  28. BILARGEN [Concomitant]
     Indication: Rash
     Dosage: UNK
     Route: 065
     Dates: start: 20180601, end: 20180625
  29. FENTANYL [Concomitant]
     Active Substance: FENTANYL
     Indication: Product used for unknown indication
     Dosage: ONGOING = CHECKED
     Route: 065
     Dates: start: 20161015

REACTIONS (4)
  - Device related infection [Recovered/Resolved]
  - Platelet count decreased [Recovered/Resolved]
  - Platelet count decreased [Recovered/Resolved]
  - Peripheral sensory neuropathy [Recovered/Resolved]

NARRATIVE: CASE EVENT DATE: 20180115
